FAERS Safety Report 12284882 (Version 2)
Quarter: 2017Q1

REPORT INFORMATION
  Report Type: Spontaneous
  Country: US (occurrence: US)
  Receive Date: 20160420
  Receipt Date: 20170110
  Transmission Date: 20170428
  Serious: No
  Sender: FDA-Public Use
  Company Number: US-TEVA-648464USA

PATIENT
  Age: 28 Year
  Sex: Female

DRUGS (4)
  1. ZECUITY [Suspect]
     Active Substance: SUMATRIPTAN SUCCINATE
     Indication: MIGRAINE
     Route: 062
     Dates: start: 20160330
  2. TIZANIDINE. [Concomitant]
     Active Substance: TIZANIDINE
  3. ZONISAMIDE. [Concomitant]
     Active Substance: ZONISAMIDE
  4. ZOMIG [Concomitant]
     Active Substance: ZOLMITRIPTAN
     Dosage: 5 MG SPRAY

REACTIONS (9)
  - Hypersensitivity [Unknown]
  - Application site urticaria [Unknown]
  - Application site swelling [Unknown]
  - Application site pruritus [Unknown]
  - Application site swelling [Recovered/Resolved]
  - Application site pain [Not Recovered/Not Resolved]
  - Application site erythema [Unknown]
  - Application site warmth [Unknown]
  - Application site vesicles [Recovered/Resolved]

NARRATIVE: CASE EVENT DATE: 20160330
